FAERS Safety Report 18311073 (Version 2)
Quarter: 2020Q3

REPORT INFORMATION
  Report Type: Spontaneous
  Country: CA (occurrence: CA)
  Receive Date: 20200925
  Receipt Date: 20200925
  Transmission Date: 20201103
  Serious: Yes (Other)
  Sender: FDA-Public Use
  Company Number: CA-ORION CORPORATION ORION PHARMA-20_00010897

PATIENT
  Age: 50 Year
  Sex: Female

DRUGS (5)
  1. NAPROXEN. [Concomitant]
     Active Substance: NAPROXEN
     Dosage: AS NEEDED (PRN)
     Route: 048
  2. SULFASALAZINE. [Concomitant]
     Active Substance: SULFASALAZINE
     Route: 048
     Dates: start: 202007
  3. FOLIC ACID. [Concomitant]
     Active Substance: FOLIC ACID
     Dosage: 1X/DAY 6X/WEEK
     Route: 048
  4. PLAQUENIL [Concomitant]
     Active Substance: HYDROXYCHLOROQUINE SULFATE
     Dosage: 1X/DAY (5X/WEEK)
     Route: 048
     Dates: start: 202001
  5. METHOTREXATE (TRADE NAME UNKNOWN) [Suspect]
     Active Substance: METHOTREXATE
     Indication: PRODUCT USED FOR UNKNOWN INDICATION
     Dosage: ON SUNDAYS
     Route: 048
     Dates: start: 202002

REACTIONS (6)
  - Blood pressure decreased [Unknown]
  - Groin pain [Unknown]
  - Rheumatoid arthritis [Unknown]
  - Joint effusion [Unknown]
  - Synovial cyst [Unknown]
  - Synovitis [Unknown]

NARRATIVE: CASE EVENT DATE: 2020
